FAERS Safety Report 6143486-7 (Version None)
Quarter: 2009Q2

REPORT INFORMATION
  Report Type: 
  Country: None (occurrence: None)
  Receive Date: 20090403
  Receipt Date: 20090330
  Transmission Date: 20091009
  Serious: Yes (Death, Disabling, Other)
  Sender: FDA-Public Use
  Company Number: PHHY2009FR11984

PATIENT
  Sex: Female

DRUGS (6)
  1. ZOMETA [Suspect]
     Indication: METASTASES TO BONE
     Dosage: UNK
     Dates: start: 20080901, end: 20080901
  2. NEORECORMON ^ROCHE^ [Suspect]
     Indication: ANAEMIA
     Dosage: UNK
     Dates: start: 20080901, end: 20081010
  3. ALLOPURINOL [Concomitant]
     Dosage: UNK
     Dates: start: 20080701
  4. THALIDOMIDE [Concomitant]
     Dosage: 100 MG/DAY
     Dates: start: 20080716, end: 20081010
  5. ALKERAN [Concomitant]
     Dosage: UNK
     Dates: start: 20080716
  6. CORTANCYL [Concomitant]
     Dosage: UNK
     Dates: start: 20080716

REACTIONS (7)
  - BONE MARROW DISORDER [None]
  - GENERAL PHYSICAL HEALTH DETERIORATION [None]
  - MULTIPLE MYELOMA [None]
  - PANCYTOPENIA [None]
  - PLASMACYTOSIS [None]
  - RETINAL ARTERY THROMBOSIS [None]
  - VISUAL ACUITY REDUCED [None]
